FAERS Safety Report 19389027 (Version 1)
Quarter: 2021Q2

REPORT INFORMATION
  Report Type: Spontaneous
  Country: US (occurrence: US)
  Receive Date: 20210607
  Receipt Date: 20210607
  Transmission Date: 20210717
  Serious: No
  Sender: FDA-Public Use
  Company Number: US-FDC LIMITED-2020RIS00435

PATIENT
  Sex: Female
  Weight: 50.34 kg

DRUGS (4)
  1. ROCKLATAN [Concomitant]
     Active Substance: LATANOPROST\NETARSUDIL MESYLATE
     Dosage: UNK, 1X/DAY AT NIGHT
  2. PRIMADONE [Concomitant]
     Active Substance: PRIMIDONE
     Dosage: UNK, 3X/DAY
  3. AZOPT [Concomitant]
     Active Substance: BRINZOLAMIDE
     Dosage: UNK, 3X/DAY
  4. TIMOLOL MALEATE. [Suspect]
     Active Substance: TIMOLOL MALEATE
     Indication: GLAUCOMA
     Dosage: 1 DROP IN BOTH EYES, 2X/DAY
     Route: 047

REACTIONS (3)
  - Nasal congestion [Not Recovered/Not Resolved]
  - Hypertension [Not Recovered/Not Resolved]
  - Nervousness [Not Recovered/Not Resolved]

NARRATIVE: CASE EVENT DATE: 2020
